FAERS Safety Report 7175628-9 (Version None)
Quarter: 2010Q4

REPORT INFORMATION
  Report Type: 
  Country: None (occurrence: None)
  Receive Date: 20101220
  Receipt Date: 20100324
  Transmission Date: 20110411
  Serious: No
  Sender: FDA-Public Use
  Company Number: US-AMGEN-TCS399883

PATIENT

DRUGS (2)
  1. ENBREL [Suspect]
     Indication: PSORIASIS
     Dosage: 50 MG, QWK
     Dates: start: 20060101
  2. ERGOCALCIFEROL [Concomitant]
     Dosage: 50000 IU, 2 TIMES/WK
     Route: 048
     Dates: start: 20100101

REACTIONS (1)
  - PSORIASIS [None]
